FAERS Safety Report 13322074 (Version 6)
Quarter: 2017Q4

REPORT INFORMATION
  Report Type: Spontaneous
  Country: US (occurrence: US)
  Receive Date: 20170310
  Receipt Date: 20171013
  Transmission Date: 20180320
  Serious: Yes (Hospitalization, Other)
  Sender: FDA-Public Use
  Company Number: US-UNITED THERAPEUTICS-UNT-2017-003132

PATIENT
  Age: 48 Year
  Sex: Male
  Weight: 102 kg

DRUGS (5)
  1. LETAIRIS [Suspect]
     Active Substance: AMBRISENTAN
     Dosage: UNK
     Route: 065
  2. REMODULIN [Suspect]
     Active Substance: TREPROSTINIL
     Indication: PULMONARY ARTERIAL HYPERTENSION
     Dosage: 0.076 ?G/KG, CONTINUING
     Route: 058
     Dates: start: 20170111
  3. LETAIRIS [Suspect]
     Active Substance: AMBRISENTAN
     Indication: PRODUCT USED FOR UNKNOWN INDICATION
     Dosage: 10 MG, QD
     Route: 065
     Dates: start: 20151216
  4. REMODULIN [Suspect]
     Active Substance: TREPROSTINIL
     Dosage: 0.088 ?G/KG, CONTINUING
     Route: 058
  5. ADCIRCA [Concomitant]
     Active Substance: TADALAFIL
     Indication: PRODUCT USED FOR UNKNOWN INDICATION

REACTIONS (7)
  - Diarrhoea [Not Recovered/Not Resolved]
  - Head injury [Unknown]
  - Myocardial infarction [Unknown]
  - Cardiac failure [Unknown]
  - Fluid retention [Not Recovered/Not Resolved]
  - Fall [Recovered/Resolved]
  - Cerebrovascular accident [Unknown]

NARRATIVE: CASE EVENT DATE: 2017
